FAERS Safety Report 9786465 (Version 2)
Quarter: 2014Q1

REPORT INFORMATION
  Report Type: Report from Study
  Country: US (occurrence: US)
  Receive Date: 20131227
  Receipt Date: 20140210
  Transmission Date: 20141002
  Serious: Yes (Hospitalization)
  Sender: FDA-Public Use
  Company Number: US-BRISTOL-MYERS SQUIBB COMPANY-19929983

PATIENT
  Age: 82 Year
  Sex: Female

DRUGS (10)
  1. ERBITUX [Suspect]
     Indication: HEAD AND NECK CANCER
     Dosage: ERBITUX INFUSION
     Route: 042
     Dates: start: 20131119
  2. CISPLATIN [Suspect]
     Indication: HEAD AND NECK CANCER
  3. DOCETAXEL [Suspect]
     Indication: HEAD AND NECK CANCER
  4. POTASSIUM CHLORIDE [Concomitant]
  5. ONDANSETRON [Concomitant]
  6. METOPROLOL [Concomitant]
     Indication: BLOOD PRESSURE
  7. LEVOTHYROXINE [Concomitant]
  8. DONEPEZIL [Concomitant]
  9. LISINOPRIL [Concomitant]
  10. MAGNESIUM OXIDE [Concomitant]

REACTIONS (9)
  - Dehydration [Unknown]
  - Blood magnesium decreased [Unknown]
  - Blood potassium decreased [Unknown]
  - Pyrexia [Unknown]
  - Dysphagia [Unknown]
  - Fatigue [Unknown]
  - Alopecia [Unknown]
  - Asthenia [Unknown]
  - Decreased appetite [Unknown]
